FAERS Safety Report 16536956 (Version 1)
Quarter: 2019Q3

REPORT INFORMATION
  Report Type: Spontaneous
  Country: DE (occurrence: DE)
  Receive Date: 20190707
  Receipt Date: 20190707
  Transmission Date: 20191004
  Serious: Yes (Hospitalization)
  Sender: FDA-Public Use
  Company Number: PHHY2019DE154155

PATIENT
  Age: 46 Year
  Sex: Female

DRUGS (1)
  1. ACETYLSALICYLIC ACID [Suspect]
     Active Substance: ASPIRIN
     Indication: PRODUCT USED FOR UNKNOWN INDICATION
     Dosage: UNK MG, UNK
     Route: 065

REACTIONS (6)
  - Electrocardiogram abnormal [Unknown]
  - Loss of consciousness [Unknown]
  - Aspiration [Unknown]
  - Vomiting [Unknown]
  - Pulmonary haemorrhage [Unknown]
  - Cardiac arrest [Unknown]
